FAERS Safety Report 23722697 (Version 3)
Quarter: 2024Q2

REPORT INFORMATION
  Report Type: Spontaneous
  Country: US (occurrence: US)
  Receive Date: 20240409
  Receipt Date: 20240515
  Transmission Date: 20240716
  Serious: No
  Sender: FDA-Public Use
  Company Number: US-PFIZER INC-PV202400000556

PATIENT
  Age: 85 Year
  Sex: Male

DRUGS (3)
  1. TALZENNA [Suspect]
     Active Substance: TALAZOPARIB TOSYLATE
     Indication: Hormone-refractory prostate cancer
     Dosage: 0.5 MG, DAILY [TAKE ONE TAB PO DAILY]
     Route: 048
  2. TALZENNA [Suspect]
     Active Substance: TALAZOPARIB TOSYLATE
     Dosage: 0.25 MG
  3. TALZENNA [Suspect]
     Active Substance: TALAZOPARIB TOSYLATE
     Dosage: 0.35 MG

REACTIONS (1)
  - Haemorrhage [Unknown]
